FAERS Safety Report 17023922 (Version 2)
Quarter: 2019Q4

REPORT INFORMATION
  Report Type: Spontaneous
  Country: DE (occurrence: DE)
  Receive Date: 20191113
  Receipt Date: 20191210
  Transmission Date: 20200122
  Serious: Yes (Other)
  Sender: FDA-Public Use
  Company Number: DE-SUN PHARMACEUTICAL INDUSTRIES LTD-2019RR-227383

PATIENT
  Age: 39 Year
  Sex: Female
  Weight: 55 kg

DRUGS (5)
  1. MIRTAZAPIN [Suspect]
     Active Substance: MIRTAZAPINE
     Dosage: 1.8 MILLIGRAM, DAILY
     Route: 065
     Dates: start: 201909, end: 201910
  2. MIRTAZAPIN [Suspect]
     Active Substance: MIRTAZAPINE
     Dosage: 3.75 MILLIGRAM, DAILY
     Route: 048
     Dates: start: 201905, end: 201907
  3. MIRTAZAPIN [Suspect]
     Active Substance: MIRTAZAPINE
     Indication: SLEEP DISORDER
     Dosage: 2.3 MILLIGRAM, DAILY
     Route: 048
     Dates: start: 201908, end: 201909
  4. MIRTAZAPIN [Suspect]
     Active Substance: MIRTAZAPINE
     Indication: SLEEP DISORDER
     Dosage: UNK UNK, DAILY
     Route: 048
     Dates: start: 201906, end: 201909
  5. MIRTAZAPIN [Suspect]
     Active Substance: MIRTAZAPINE
     Dosage: 1 MILLIGRAM, DAILY
     Route: 048

REACTIONS (9)
  - Affect lability [Unknown]
  - Restlessness [Unknown]
  - Headache [Unknown]
  - Anxiety [Unknown]
  - Drug withdrawal convulsions [Recovering/Resolving]
  - Depression [Recovered/Resolved]
  - Suicidal ideation [Unknown]
  - Withdrawal syndrome [Recovering/Resolving]
  - Visual impairment [Unknown]

NARRATIVE: CASE EVENT DATE: 201910
